FAERS Safety Report 9849971 (Version 2)
Quarter: 2014Q2

REPORT INFORMATION
  Report Type: Report from Study
  Country: DE (occurrence: TR)
  Receive Date: 20140128
  Receipt Date: 20140527
  Transmission Date: 20141212
  Serious: Yes (Death, Other)
  Sender: FDA-Public Use
  Company Number: DE-ACTELION-A-US2014-94079

PATIENT
  Age: 59 Year
  Sex: Male

DRUGS (1)
  1. VENTAVIS [Suspect]
     Indication: PULMONARY HYPERTENSION
     Dosage: 3X1/2
     Route: 055
     Dates: start: 20140115, end: 20140118

REACTIONS (3)
  - Renal failure chronic [Fatal]
  - Cardiac failure chronic [Fatal]
  - General physical health deterioration [Unknown]
